FAERS Safety Report 13257136 (Version 1)
Quarter: 2017Q1

REPORT INFORMATION
  Report Type: Report from Study
  Country: None (occurrence: CR)
  Receive Date: 20170221
  Receipt Date: 20170221
  Transmission Date: 20170428
  Serious: Yes (Death)
  Sender: FDA-Public Use
  Company Number: CR-ABBVIE-17K-039-1881274-00

PATIENT
  Sex: Male

DRUGS (1)
  1. HUMIRA [Suspect]
     Active Substance: ADALIMUMAB
     Indication: CROHN^S DISEASE
     Route: 058
     Dates: start: 201212, end: 201701

REACTIONS (3)
  - Hepatic failure [Fatal]
  - Pneumonia [Fatal]
  - Sepsis [Fatal]
